FAERS Safety Report 10445264 (Version 1)
Quarter: 2014Q3

REPORT INFORMATION
  Report Type: Report from Study
  Country: US (occurrence: US)
  Receive Date: 20140910
  Receipt Date: 20140910
  Transmission Date: 20150326
  Serious: Yes (Other)
  Sender: FDA-Public Use
  Company Number: US-ALEXION PHARMACEUTICALS INC-A201403441

PATIENT

DRUGS (2)
  1. SOLIRIS [Suspect]
     Active Substance: ECULIZUMAB
     Dosage: 600 MG, QW X4 WKS
     Route: 042
  2. SOLIRIS [Suspect]
     Active Substance: ECULIZUMAB
     Indication: PRODUCT USED FOR UNKNOWN INDICATION
     Dosage: UNK
     Route: 042

REACTIONS (1)
  - Haemoglobin decreased [Not Recovered/Not Resolved]

NARRATIVE: CASE EVENT DATE: 20140825
